FAERS Safety Report 7013982-9 (Version None)
Quarter: 2010Q3

REPORT INFORMATION
  Report Type: 
  Country: None (occurrence: None)
  Receive Date: 20100926
  Receipt Date: 20100923
  Transmission Date: 20110219
  Serious: Yes (Other)
  Sender: FDA-Public Use
  Company Number: PHHO2010AU14436

PATIENT
  Sex: Female

DRUGS (1)
  1. CGP 57148B T35717+ [Suspect]
     Indication: SYNOVITIS
     Dosage: UNK
     Route: 048
     Dates: start: 20100301

REACTIONS (4)
  - DIARRHOEA [None]
  - NAUSEA [None]
  - NEUTROPENIC SEPSIS [None]
  - VOMITING [None]
